FAERS Safety Report 20714048 (Version 1)
Quarter: 2022Q2

REPORT INFORMATION
  Report Type: Spontaneous
  Country: US (occurrence: None)
  Receive Date: 20220414
  Receipt Date: 20220414
  Transmission Date: 20220721
  Serious: Yes (Other)
  Sender: FDA-Public Use
  Company Number: None

PATIENT
  Age: 45 Year
  Sex: Male
  Weight: 58.5 kg

DRUGS (1)
  1. AUSTEDO [Suspect]
     Active Substance: DEUTETRABENAZINE
     Indication: Huntington^s disease
     Dosage: OTHER QUANTITY : 9 TABLET(S);?FREQUENCY : TWICE A DAY;?
     Dates: start: 20211124, end: 20220410

REACTIONS (9)
  - Therapy change [None]
  - Psychotic disorder [None]
  - Musculoskeletal stiffness [None]
  - Hyperhidrosis [None]
  - Dyspnoea [None]
  - Insomnia [None]
  - Restlessness [None]
  - Therapy change [None]
  - Pollakiuria [None]

NARRATIVE: CASE EVENT DATE: 20220325
